FAERS Safety Report 24449659 (Version 1)
Quarter: 2024Q4

REPORT INFORMATION
  Report Type: Spontaneous
  Country: US (occurrence: None)
  Receive Date: 20241016
  Receipt Date: 20241016
  Transmission Date: 20250115
  Serious: Yes (Hospitalization)
  Sender: Public
  Company Number: None

PATIENT
  Age: 78 Year
  Sex: Male
  Weight: 87 kg

DRUGS (1)
  1. TRAMADOL HYDROCHLORIDE [Suspect]
     Active Substance: TRAMADOL HYDROCHLORIDE
     Indication: Pain
     Dosage: FREQUENCY : 4 TIMES A DAY;?
     Route: 048

REACTIONS (5)
  - Confusional state [None]
  - Dizziness [None]
  - Headache [None]
  - Mental status changes [None]
  - Dizziness [None]

NARRATIVE: CASE EVENT DATE: 20230927
